FAERS Safety Report 6857913-0 (Version None)
Quarter: 2010Q3

REPORT INFORMATION
  Report Type: 
  Country: None (occurrence: None)
  Receive Date: 20100715
  Receipt Date: 20100707
  Transmission Date: 20110219
  Serious: Yes (Other)
  Sender: FDA-Public Use
  Company Number: RB-00549-2010

PATIENT
  Age: 56 Year
  Sex: Male

DRUGS (1)
  1. SUBOXONE [Suspect]
     Indication: PRODUCT USED FOR UNKNOWN INDICATION

REACTIONS (10)
  - ANXIETY [None]
  - DEPRESSION [None]
  - DIZZINESS [None]
  - DRUG WITHDRAWAL SYNDROME [None]
  - FALL [None]
  - HYPERHIDROSIS [None]
  - PANIC ATTACK [None]
  - ROTATOR CUFF SYNDROME [None]
  - STRABISMUS [None]
  - VISION BLURRED [None]
